FAERS Safety Report 9654717 (Version 1)
Quarter: 2013Q4

REPORT INFORMATION
  Report Type: Spontaneous
  Country: US (occurrence: US)
  Receive Date: 20131029
  Receipt Date: 20131029
  Transmission Date: 20140711
  Serious: Yes (Hospitalization, Other)
  Sender: FDA-Public Use
  Company Number: GXBR2013US001872

PATIENT
  Age: 67 Year
  Sex: Female
  Weight: 53.61 kg

DRUGS (6)
  1. AMOXICILLIN CAPSULES, USP [Suspect]
     Indication: SINUSITIS
     Dosage: 250 MG, QID
     Route: 048
     Dates: start: 20130911, end: 20130911
  2. XANAX [Concomitant]
     Indication: MUSCLE SPASMS
     Dosage: 1 MG, TID
     Route: 048
  3. VITAMIN B12 [Concomitant]
     Dosage: UNK, QMO
  4. TRAZODONE [Concomitant]
     Dosage: 1 DF, QHS
  5. DIOVAN [Concomitant]
     Indication: HYPERTENSION
     Dosage: 40 MG, QD
     Route: 048
  6. VENTOLIN HFA [Concomitant]
     Dosage: UNK DF, PRN

REACTIONS (9)
  - Chest pain [Recovered/Resolved]
  - Chest discomfort [Recovered/Resolved]
  - Hypersensitivity [Recovered/Resolved]
  - Pruritus [Recovered/Resolved]
  - Eye swelling [Recovered/Resolved]
  - Pain in extremity [Recovered/Resolved]
  - Neck pain [Recovered/Resolved]
  - Pain in jaw [Recovered/Resolved]
  - Headache [Recovered/Resolved]
